FAERS Safety Report 14459515 (Version 1)
Quarter: 2018Q1

REPORT INFORMATION
  Report Type: Spontaneous
  Country: US (occurrence: US)
  Receive Date: 20180129
  Receipt Date: 20180129
  Transmission Date: 20180509
  Serious: No
  Sender: FDA-Public Use
  Company Number: None

PATIENT
  Age: 61 Year
  Sex: Female
  Weight: 62.55 kg

DRUGS (8)
  1. SCOPOLAMINE TRANSDERMAL SYSTEM 1MG/3DAYS [Suspect]
     Active Substance: SCOPOLAMINE
     Indication: MOTION SICKNESS
     Dosage: QUANTITY:1 PATCH(ES);OTHER FREQUENCY:3 DAY;?
     Route: 062
     Dates: start: 20180119, end: 20180123
  2. BIOTIN [Concomitant]
     Active Substance: BIOTIN
  3. MAGNEIUM [Concomitant]
  4. VITAMIN K [Concomitant]
     Active Substance: PHYTONADIONE
  5. MILK THISTLE [Concomitant]
     Active Substance: DIETARY SUPPLEMENT\HERBALS\MILK THISTLE
  6. GABAPENTIN. [Concomitant]
     Active Substance: GABAPENTIN
  7. VITAMIN D [Concomitant]
     Active Substance: CHOLECALCIFEROL
  8. ALLERTECH [Concomitant]

REACTIONS (5)
  - Withdrawal syndrome [None]
  - Balance disorder [None]
  - Nausea [None]
  - Vomiting [None]
  - Dysstasia [None]

NARRATIVE: CASE EVENT DATE: 20180124
